FAERS Safety Report 22278176 (Version 1)
Quarter: 2023Q2

REPORT INFORMATION
  Report Type: Spontaneous
  Country: US (occurrence: None)
  Receive Date: 20230502
  Receipt Date: 20230502
  Transmission Date: 20230722
  Serious: Yes (Hospitalization)
  Sender: FDA-Public Use
  Company Number: None

PATIENT
  Sex: Female

DRUGS (14)
  1. CIMZIA [Suspect]
     Active Substance: CERTOLIZUMAB PEGOL
     Route: 058
     Dates: start: 20230214
  2. ALBUTEROL AER HFA [Concomitant]
  3. ATORVASTATIN [Concomitant]
  4. BENZONATATE [Concomitant]
     Active Substance: BENZONATATE
  5. BUPROPION HYDROCHLORIDE [Concomitant]
     Active Substance: BUPROPION HYDROCHLORIDE
  6. CITALOPRAM TAB [Concomitant]
  7. LISINOPRIL [Concomitant]
     Active Substance: LISINOPRIL
  8. METHIMAZOLE [Concomitant]
  9. METHOTREXATE [Concomitant]
  10. METOPROL SUC [Concomitant]
  11. PREDNISONE [Concomitant]
  12. PROMETHAZINE SOL DM [Concomitant]
  13. RASUVO [Concomitant]
     Active Substance: METHOTREXATE SODIUM
  14. SULFASALAZIN [Concomitant]

REACTIONS (3)
  - Product dose omission in error [None]
  - Product use issue [None]
  - Condition aggravated [None]
